FAERS Safety Report 19729643 (Version 5)
Quarter: 2023Q2

REPORT INFORMATION
  Report Type: Other
  Country: US (occurrence: None)
  Receive Date: 20210821
  Receipt Date: 20230414
  Transmission Date: 20230721
  Serious: Yes (Hospitalization, Other)
  Sender: FDA-Public Use
  Company Number: US-ROCHE-2890379

PATIENT
  Age: 65 Year
  Sex: Female
  Weight: 86.260 kg

DRUGS (15)
  1. OCREVUS [Suspect]
     Active Substance: OCRELIZUMAB
     Indication: Relapsing-remitting multiple sclerosis
     Dosage: DATE OF TREATMENT: 22-JUL-2020, 2023-03-27, 2021-02-03
     Route: 042
     Dates: start: 2019
  2. OCREVUS [Suspect]
     Active Substance: OCRELIZUMAB
     Route: 042
     Dates: start: 2016
  3. RITUXAN [Suspect]
     Active Substance: RITUXIMAB
     Indication: Relapsing-remitting multiple sclerosis
     Dosage: RECEIVED THE 2 DOSES 2 WEEKS APART
     Route: 042
     Dates: start: 2014, end: 2019
  4. RITUXAN [Suspect]
     Active Substance: RITUXIMAB
     Route: 042
  5. TYLENOL [Concomitant]
     Active Substance: ACETAMINOPHEN
     Indication: Chills
  6. TYLENOL [Concomitant]
     Active Substance: ACETAMINOPHEN
     Indication: Hyperhidrosis
  7. POTASSIUM [Concomitant]
     Active Substance: POTASSIUM
     Dates: start: 20210806, end: 20210806
  8. MAGNESIUM [Concomitant]
     Active Substance: MAGNESIUM
     Dates: start: 20210806, end: 20210806
  9. DILTIAZEM [Concomitant]
     Active Substance: DILTIAZEM
     Indication: Hypertension
     Route: 048
     Dates: start: 2016
  10. PRAVASTATIN [Concomitant]
     Active Substance: PRAVASTATIN
     Route: 048
     Dates: start: 2019
  11. VENLAFAXINE [Concomitant]
     Active Substance: VENLAFAXINE HYDROCHLORIDE
     Indication: Crying
     Route: 048
  12. VENLAFAXINE [Concomitant]
     Active Substance: VENLAFAXINE HYDROCHLORIDE
     Route: 048
     Dates: start: 2014
  13. RANEXA [Concomitant]
     Active Substance: RANOLAZINE
     Indication: Pain
     Dosage: SOMETIMES 2 PER DAY
     Route: 048
     Dates: start: 2017
  14. RANEXA [Concomitant]
     Active Substance: RANOLAZINE
     Indication: Palpitations
  15. NEXIUM [Concomitant]
     Active Substance: ESOMEPRAZOLE MAGNESIUM
     Route: 048
     Dates: start: 2009

REACTIONS (12)
  - Escherichia bacteraemia [Recovered/Resolved]
  - Antibody test negative [Not Recovered/Not Resolved]
  - Urinary tract infection [Recovered/Resolved]
  - Sepsis [Recovered/Resolved]
  - Headache [Unknown]
  - Blood pressure increased [Not Recovered/Not Resolved]
  - Blood cholesterol abnormal [Not Recovered/Not Resolved]
  - Heart disease congenital [Not Recovered/Not Resolved]
  - Off label use [Unknown]
  - Off label use [Unknown]
  - Chills [Recovered/Resolved]
  - Pyrexia [Recovered/Resolved]

NARRATIVE: CASE EVENT DATE: 20160101
